FAERS Safety Report 4890472-0 (Version None)
Quarter: 2005Q4

REPORT INFORMATION
  Report Type: 
  Country: None (occurrence: None)
  Receive Date: 20051216
  Receipt Date: 20050826
  Transmission Date: 20060501
  Serious: No
  Sender: FDA-Public Use
  Company Number: BDI-007481

PATIENT
  Sex: Male
  Weight: 86 kg

DRUGS (2)
  1. MULTIHANCE [Suspect]
     Indication: BACK PAIN
     Dosage: 30  ML ONCE IV
     Route: 042
     Dates: start: 20050601, end: 20050601
  2. MULTIHANCE [Suspect]
     Indication: NUCLEAR MAGNETIC RESONANCE IMAGING
     Dosage: 30  ML ONCE IV
     Route: 042
     Dates: start: 20050601, end: 20050601

REACTIONS (1)
  - URTICARIA [None]
